FAERS Safety Report 9936775 (Version 1)
Quarter: 2014Q1

REPORT INFORMATION
  Report Type: Spontaneous
  Country: US (occurrence: None)
  Receive Date: 20140108
  Receipt Date: 20140108
  Transmission Date: 20141002
  Serious: Yes (Other)
  Sender: FDA-Public Use
  Company Number: E2B_00001438

PATIENT
  Sex: Female
  Weight: 72.58 kg

DRUGS (4)
  1. ESCITALOPRAM [Suspect]
     Indication: DEPRESSION
     Route: 048
     Dates: start: 201201, end: 201307
  2. ESCITALOPRAM [Suspect]
     Indication: PANIC ATTACK
     Route: 048
     Dates: start: 201201, end: 201307
  3. ATENOLOL [Concomitant]
  4. LISINOPRIL [Concomitant]

REACTIONS (8)
  - Suicidal ideation [None]
  - Panic attack [None]
  - Depression [None]
  - Anxiety [None]
  - Heart rate irregular [None]
  - Insomnia [None]
  - Drug ineffective [None]
  - Product substitution issue [None]
